FAERS Safety Report 15597562 (Version 1)
Quarter: 2018Q4

REPORT INFORMATION
  Report Type: Report from Study
  Country: CH (occurrence: CH)
  Receive Date: 20181108
  Receipt Date: 20181108
  Transmission Date: 20190205
  Serious: Yes (Other)
  Sender: FDA-Public Use
  Company Number: CH-TEVA-2018-CH-972058

PATIENT
  Age: 14 Year
  Sex: Male

DRUGS (1)
  1. ZOLEDRONATE [Suspect]
     Active Substance: ZOLEDRONIC ACID
     Indication: BONE PAIN
     Route: 041

REACTIONS (2)
  - Myoglobinuria [Unknown]
  - Rhabdomyolysis [Recovered/Resolved]
